FAERS Safety Report 22919102 (Version 3)
Quarter: 2023Q4

REPORT INFORMATION
  Report Type: Report from Study
  Country: US (occurrence: US)
  Receive Date: 20230907
  Receipt Date: 20231121
  Transmission Date: 20240110
  Serious: No
  Sender: FDA-Public Use
  Company Number: US-JNJFOC-20230901521

PATIENT
  Age: 3 Decade
  Sex: Male
  Weight: 84.898 kg

DRUGS (1)
  1. INFLIXIMAB [Suspect]
     Active Substance: INFLIXIMAB
     Indication: Inflammatory bowel disease
     Route: 041
     Dates: start: 20110509, end: 20140506

REACTIONS (1)
  - Pilonidal disease [Recovered/Resolved]

NARRATIVE: CASE EVENT DATE: 20230805
